FAERS Safety Report 9719988 (Version 4)
Quarter: 2014Q1

REPORT INFORMATION
  Report Type: Report from Study
  Country: FR (occurrence: FR)
  Receive Date: 20131128
  Receipt Date: 20140103
  Transmission Date: 20141002
  Serious: Yes (Hospitalization)
  Sender: FDA-Public Use
  Company Number: FR-ROCHE-1308422

PATIENT
  Age: 79 Year
  Sex: Male

DRUGS (5)
  1. RITUXIMAB [Suspect]
     Indication: DIFFUSE LARGE B-CELL LYMPHOMA
     Dosage: LAST DOSE PRIOR TO SAE 7/NOV/20 13
     Route: 042
     Dates: start: 20131107, end: 20131128
  2. CYCLOPHOSPHAMIDE [Suspect]
     Indication: DIFFUSE LARGE B-CELL LYMPHOMA
     Dosage: LAST DOSE PRIOR TO SAE 7/NOV/2013
     Route: 065
     Dates: start: 20131107, end: 20131128
  3. DOXORUBICINE [Suspect]
     Indication: DIFFUSE LARGE B-CELL LYMPHOMA
     Dosage: LAST DOSE PRIOR TO SAE 7/NOV/2013
     Route: 065
     Dates: start: 20131107, end: 20131128
  4. VINCRISTINE [Suspect]
     Indication: DIFFUSE LARGE B-CELL LYMPHOMA
     Dosage: LAST DOSE PRIOR TO SAE 7/NOV/2013
     Route: 065
     Dates: start: 20131107, end: 20131128
  5. METHYLPREDNISOLONE SODIUM SUCCINATE [Suspect]
     Indication: DIFFUSE LARGE B-CELL LYMPHOMA
     Dosage: LAST DOSE PRIOR TO SAE 7/NOV/2013
     Route: 065
     Dates: start: 20131107, end: 20131128

REACTIONS (1)
  - Febrile bone marrow aplasia [Not Recovered/Not Resolved]
